FAERS Safety Report 9758677 (Version 1)
Quarter: 2013Q4

REPORT INFORMATION
  Report Type: Spontaneous
  Country: US (occurrence: None)
  Receive Date: 20131216
  Receipt Date: 20131216
  Transmission Date: 20140711
  Serious: Yes (Other)
  Sender: FDA-Public Use
  Company Number: RB-52053-2013

PATIENT
  Age: 41 Year
  Sex: Male

DRUGS (3)
  1. SUBOXONE 8 MG [Suspect]
     Indication: DRUG DEPENDENCE
     Dosage: (16 MG SUBLINGUAL)
  2. SUBOXONE 8 MG [Suspect]
     Indication: DRUG DEPENDENCE
     Dosage: (16 MG, SUBOXONE FILM SUBLINGUAL)
  3. ANTIDEPRESSANTS [Concomitant]

REACTIONS (4)
  - Drug withdrawal syndrome [None]
  - Dysarthria [None]
  - Convulsion [None]
  - Hypertension [None]
